FAERS Safety Report 25019476 (Version 1)
Quarter: 2025Q1

REPORT INFORMATION
  Report Type: Spontaneous
  Country: US (occurrence: None)
  Receive Date: 20250227
  Receipt Date: 20250227
  Transmission Date: 20250408
  Serious: Yes (Other)
  Sender: FDA-CTU
  Company Number: None

PATIENT
  Age: 79 Year
  Sex: Male
  Weight: 87.75 kg

DRUGS (12)
  1. LATANOPROST [Suspect]
     Active Substance: LATANOPROST
     Indication: Glaucoma
     Dosage: OTHER QUANTITY : 2.5 DROP(S);?FREQUENCY : AT BEDTIME;?
     Route: 047
     Dates: start: 20241216, end: 20250115
  2. DORZOLAMIDE [Suspect]
     Active Substance: DORZOLAMIDE
     Indication: Glaucoma
     Route: 047
     Dates: end: 20250214
  3. PACE MAKER [Concomitant]
  4. METOPROLOL [Concomitant]
     Active Substance: METOPROLOL
  5. METOPROLOL [Concomitant]
     Active Substance: METOPROLOL
  6. TAMSULOSIN [Concomitant]
     Active Substance: TAMSULOSIN
  7. CELECOXIB [Concomitant]
     Active Substance: CELECOXIB
  8. LEVOTHYROXINE [Concomitant]
     Active Substance: LEVOTHYROXINE
  9. VITAMIN B [Concomitant]
     Active Substance: VITAMIN B
  10. VITAMIN D3 [Concomitant]
     Active Substance: CHOLECALCIFEROL
  11. MAGNESIUM [Concomitant]
     Active Substance: MAGNESIUM
  12. ZINC [Concomitant]
     Active Substance: ZINC

REACTIONS (2)
  - Chest discomfort [None]
  - Chest pain [None]

NARRATIVE: CASE EVENT DATE: 20250115
